FAERS Safety Report 7290175-1 (Version None)
Quarter: 2011Q1

REPORT INFORMATION
  Report Type: 
  Country: None (occurrence: None)
  Receive Date: 20110214
  Receipt Date: 20110203
  Transmission Date: 20110831
  Serious: Yes (Other)
  Sender: FDA-Public Use
  Company Number: PHHY2011BR10518

PATIENT
  Sex: Female

DRUGS (1)
  1. ACLASTA [Suspect]
     Dosage: 5MG/100ML
     Route: 042
     Dates: start: 20091116

REACTIONS (9)
  - DYSTROPHIC CALCIFICATION [None]
  - CEREBRAL CALCIFICATION [None]
  - VASCULAR CALCIFICATION [None]
  - BLOOD PRESSURE DIASTOLIC INCREASED [None]
  - FOREARM FRACTURE [None]
  - PAIN [None]
  - ARTERIOSCLEROSIS [None]
  - FALL [None]
  - OSTEITIS DEFORMANS [None]
